FAERS Safety Report 21861237 (Version 1)
Quarter: 2023Q1

REPORT INFORMATION
  Report Type: Report from Study
  Country: GB (occurrence: GB)
  Receive Date: 20230113
  Receipt Date: 20230113
  Transmission Date: 20230418
  Serious: Yes (Death, Hospitalization, Other)
  Sender: FDA-Public Use
  Company Number: GB-002147023-NVSC2023GB007693

PATIENT
  Age: 75 Year
  Sex: Male

DRUGS (1)
  1. HYRIMOZ [Suspect]
     Active Substance: ADALIMUMAB-ADAZ
     Indication: Crohn^s disease
     Dosage: 40 MG, QW (SANDOZ LTD) 2 PRE-FILLED DISPOSABLE INJECTION
     Route: 058

REACTIONS (3)
  - Chronic kidney disease [Fatal]
  - Renal impairment [Fatal]
  - Renal pain [Fatal]
